FAERS Safety Report 6801439-7 (Version None)
Quarter: 2010Q2

REPORT INFORMATION
  Report Type: 
  Country: None (occurrence: None)
  Receive Date: 20100629
  Receipt Date: 20100621
  Transmission Date: 20101027
  Serious: Yes (Life-Threatening, Hospitalization, Congenital Anomaly, Other)
  Sender: FDA-Public Use
  Company Number: CA-ASTRAZENECA-2010SE29012

PATIENT
  Age: 41 Year
  Sex: Female
  Weight: 96 kg

DRUGS (5)
  1. SEROQUEL XR [Suspect]
     Route: 048
  2. ATIVAN [Concomitant]
  3. AVALIDE [Concomitant]
     Dosage: 300/12.5 MG
  4. EFFEXOR XR [Concomitant]
     Dosage: CAPSULE EXTENDED RELEASE
  5. RISPERDAL [Concomitant]

REACTIONS (31)
  - ANION GAP INCREASED [None]
  - BLOOD BICARBONATE DECREASED [None]
  - BLOOD CHLORIDE DECREASED [None]
  - BLOOD CREATININE INCREASED [None]
  - BLOOD PH DECREASED [None]
  - BLOOD PHOSPHORUS DECREASED [None]
  - BLOOD POTASSIUM INCREASED [None]
  - BLOOD PRESSURE [None]
  - BLOOD SODIUM DECREASED [None]
  - BLOOD UREA INCREASED [None]
  - COMA SCALE ABNORMAL [None]
  - CONFUSIONAL STATE [None]
  - DEHYDRATION [None]
  - DIABETES MELLITUS [None]
  - DIABETIC KETOACIDOSIS [None]
  - DIZZINESS [None]
  - FATIGUE [None]
  - HEART RATE INCREASED [None]
  - HYPERGLYCAEMIA [None]
  - LOSS OF CONSCIOUSNESS [None]
  - NAUSEA [None]
  - OXYGEN SATURATION DECREASED [None]
  - PARAESTHESIA [None]
  - PCO2 DECREASED [None]
  - POLYDIPSIA [None]
  - POLYURIA [None]
  - RENAL FAILURE ACUTE [None]
  - SOMNOLENCE [None]
  - SPASMODIC DYSPHONIA [None]
  - URINE KETONE BODY PRESENT [None]
  - VOMITING [None]
